FAERS Safety Report 7828130-2 (Version None)
Quarter: 2011Q4

REPORT INFORMATION
  Report Type: 
  Country: None (occurrence: None)
  Receive Date: 20111020
  Receipt Date: 20111012
  Transmission Date: 20120403
  Serious: Yes (Hospitalization)
  Sender: FDA-Public Use
  Company Number: US-GILEAD-2011-0044502

PATIENT

DRUGS (2)
  1. FLOLAN [Suspect]
  2. LETAIRIS [Suspect]
     Indication: PULMONARY HYPERTENSION
     Dosage: 10 MG, UNK
     Route: 048
     Dates: start: 20110629, end: 20110830

REACTIONS (3)
  - DIZZINESS [None]
  - SWELLING [None]
  - DYSPNOEA [None]
